FAERS Safety Report 9102565 (Version 1)
Quarter: 2013Q1

REPORT INFORMATION
  Report Type: Spontaneous
  Country: US (occurrence: US)
  Receive Date: 20130219
  Receipt Date: 20130219
  Transmission Date: 20140127
  Serious: Yes (Disabling)
  Sender: FDA-Public Use
  Company Number: US-BAYER-2013-019120

PATIENT
  Sex: Female

DRUGS (2)
  1. AVELOX [Suspect]
     Indication: PNEUMONITIS
     Dosage: UNK
     Dates: start: 201202
  2. AVELOX [Suspect]
     Indication: PNEUMONITIS
     Dosage: UNK
     Dates: start: 201102

REACTIONS (4)
  - Tendon disorder [None]
  - Rotator cuff syndrome [None]
  - Epicondylitis [None]
  - Plantar fasciitis [None]
